FAERS Safety Report 8317576-4 (Version None)
Quarter: 2012Q2

REPORT INFORMATION
  Report Type: 
  Country: None (occurrence: None)
  Receive Date: 20120427
  Receipt Date: 20111003
  Transmission Date: 20120825
  Serious: No
  Sender: FDA-Public Use
  Company Number: US-GLAXOSMITHKLINE-A0947253A

PATIENT
  Weight: 79.5 kg

DRUGS (2)
  1. RYTHMOL SR [Suspect]
     Indication: PRODUCT USED FOR UNKNOWN INDICATION
     Route: 065
  2. ZOFRAN [Suspect]
     Indication: PRODUCT USED FOR UNKNOWN INDICATION
     Route: 065

REACTIONS (21)
  - UNDERDOSE [None]
  - BLOOD GLUCOSE DECREASED [None]
  - POOR QUALITY DRUG ADMINISTERED [None]
  - PRODUCT QUALITY ISSUE [None]
  - DRY EYE [None]
  - PHOTOPHOBIA [None]
  - SOMNOLENCE [None]
  - DYSPHAGIA [None]
  - BLADDER SPASM [None]
  - ALOPECIA [None]
  - EYE IRRITATION [None]
  - WEIGHT DECREASED [None]
  - VAGINAL INFLAMMATION [None]
  - STOMATITIS [None]
  - UPPER-AIRWAY COUGH SYNDROME [None]
  - DYSGEUSIA [None]
  - EYE PAIN [None]
  - NAUSEA [None]
  - PRURITUS [None]
  - ASTHENIA [None]
  - BLOOD URINE PRESENT [None]
